FAERS Safety Report 6652878-9 (Version None)
Quarter: 2010Q1

REPORT INFORMATION
  Report Type: 
  Country: None (occurrence: None)
  Receive Date: 20100326
  Receipt Date: 20100317
  Transmission Date: 20100710
  Serious: Yes (Hospitalization)
  Sender: FDA-Public Use
  Company Number: FR-ASTRAZENECA-2010SE12076

PATIENT
  Age: 11 Month
  Sex: Male
  Weight: 8.3 kg

DRUGS (4)
  1. EMLA [Suspect]
     Indication: LOCAL ANAESTHESIA
     Dosage: 4 PATCHES ON ELBOW FOLD AND HAND
     Route: 061
     Dates: start: 20091203, end: 20091203
  2. DOTAREM [Suspect]
     Indication: NUCLEAR MAGNETIC RESONANCE IMAGING
     Route: 042
     Dates: start: 20091203, end: 20091203
  3. LARGACTIL [Concomitant]
     Indication: SEDATIVE THERAPY
     Route: 042
     Dates: start: 20091203, end: 20091203
  4. MEOPA [Concomitant]
     Indication: ANALGESIC THERAPY
     Dosage: INHALATION FOR 15 MINS
     Route: 055
     Dates: start: 20091203, end: 20091203

REACTIONS (1)
  - HEART RATE INCREASED [None]
